FAERS Safety Report 14019088 (Version 2)
Quarter: 2017Q4

REPORT INFORMATION
  Report Type: Spontaneous
  Country: DK (occurrence: DK)
  Receive Date: 20170928
  Receipt Date: 20171027
  Transmission Date: 20180321
  Serious: Yes (Hospitalization)
  Sender: FDA-Public Use
  Company Number: PHHY2017DK138440

PATIENT
  Age: 13 Year
  Sex: Female

DRUGS (4)
  1. SANDIMMUN NEORAL [Suspect]
     Active Substance: CYCLOSPORINE
     Dosage: UNK
     Route: 048
     Dates: start: 201108, end: 201509
  2. SANDIMMUN NEORAL [Suspect]
     Active Substance: CYCLOSPORINE
     Dosage: GRADUALLY REDUCED
     Route: 048
     Dates: end: 20170220
  3. SANDIMMUN NEORAL [Suspect]
     Active Substance: CYCLOSPORINE
     Indication: NEPHROTIC SYNDROME
     Dosage: 2 DF, BID (INCREASING WITH AGE/WEIGHT)
     Route: 048
     Dates: start: 2005, end: 2011
  4. PREDNISOLON [Concomitant]
     Active Substance: PREDNISOLONE
     Indication: NEPHROTIC SYNDROME
     Dosage: UNK
     Route: 065
     Dates: start: 2003

REACTIONS (1)
  - Colitis ulcerative [Not Recovered/Not Resolved]

NARRATIVE: CASE EVENT DATE: 201603
